FAERS Safety Report 5201794-8 (Version None)
Quarter: 2006Q4

REPORT INFORMATION
  Report Type: 
  Country: None (occurrence: None)
  Receive Date: 20061002
  Receipt Date: 20051028
  Transmission Date: 20070319
  Serious: Yes (Hospitalization)
  Sender: FDA-Public Use
  Company Number: TPA2005A01361

PATIENT
  Sex: Male

DRUGS (3)
  1. ACTOS [Suspect]
     Indication: DIABETES MELLITUS NON-INSULIN-DEPENDENT
     Dosage: 45 MG, PER ORAL
     Route: 048
  2. BYETTA(ALL OTHER THERAPEUTIC PRODUCTS) (10 IU (INTERNATIONAL UNIT), IN [Concomitant]
  3. METFORMIN(METFORMIN) (1000 MILLIGRAM) [Concomitant]

REACTIONS (1)
  - CARDIAC FAILURE [None]
